FAERS Safety Report 18023756 (Version 12)
Quarter: 2021Q4

REPORT INFORMATION
  Report Type: Report from Study
  Country: US (occurrence: US)
  Receive Date: 20200715
  Receipt Date: 20211231
  Transmission Date: 20220303
  Serious: Yes (Other)
  Sender: FDA-Public Use
  Company Number: US-NOVARTISPH-NVSC2020US193898

PATIENT
  Sex: Male

DRUGS (2)
  1. MAYZENT [Suspect]
     Active Substance: SIPONIMOD
     Indication: Product used for unknown indication
     Dosage: 2 MG, QD
     Route: 048
  2. MAYZENT [Suspect]
     Active Substance: SIPONIMOD
     Dosage: 2 MG, QD
     Route: 048

REACTIONS (15)
  - Urinary retention [Unknown]
  - Micturition urgency [Unknown]
  - Paraesthesia [Unknown]
  - Pain [Unknown]
  - Temperature intolerance [Unknown]
  - Hypoaesthesia [Unknown]
  - Fatigue [Unknown]
  - Dry skin [Unknown]
  - Fall [Unknown]
  - Muscular weakness [Unknown]
  - Tremor [Unknown]
  - Pain in extremity [Unknown]
  - Product dose omission issue [Unknown]
  - Peroneal nerve palsy [Unknown]
  - Head injury [Unknown]
